FAERS Safety Report 5336428-5 (Version None)
Quarter: 2007Q2

REPORT INFORMATION
  Report Type: 
  Country: None (occurrence: None)
  Receive Date: 20070529
  Receipt Date: 20070518
  Transmission Date: 20071010
  Serious: Yes (Other)
  Sender: FDA-Public Use
  Company Number: JP-JNJFOC-20070505556

PATIENT
  Sex: Male
  Weight: 70 kg

DRUGS (11)
  1. REMICADE [Suspect]
     Route: 042
  2. REMICADE [Suspect]
     Route: 042
  3. REMICADE [Suspect]
     Route: 042
  4. REMICADE [Suspect]
     Route: 042
  5. REMICADE [Suspect]
     Route: 042
  6. REMICADE [Suspect]
     Route: 042
  7. REMICADE [Suspect]
     Indication: CROHN'S DISEASE
     Route: 042
  8. IMURAN [Concomitant]
     Indication: CROHN'S DISEASE
     Route: 048
  9. PREDNISOLONE [Concomitant]
     Indication: CROHN'S DISEASE
     Route: 048
  10. PENTASA [Concomitant]
     Indication: CROHN'S DISEASE
     Route: 048
  11. SALAZOPYRIN [Concomitant]
     Indication: CROHN'S DISEASE
     Route: 048

REACTIONS (1)
  - CHRONIC MYELOID LEUKAEMIA [None]
